FAERS Safety Report 16319263 (Version 1)
Quarter: 2019Q2

REPORT INFORMATION
  Report Type: Spontaneous
  Country: CN (occurrence: CN)
  Receive Date: 20190516
  Receipt Date: 20190516
  Transmission Date: 20190711
  Serious: Yes (Hospitalization)
  Sender: FDA-Public Use
  Company Number: CN-ELI_LILLY_AND_COMPANY-CN201905005339

PATIENT
  Sex: Male
  Weight: 60 kg

DRUGS (1)
  1. HUMULIN R [Suspect]
     Active Substance: INSULIN HUMAN
     Indication: DIABETES MELLITUS
     Dosage: UNK UNK, TID
     Route: 058
     Dates: start: 2015

REACTIONS (10)
  - Blood glucose increased [Unknown]
  - Dizziness [Unknown]
  - Pain in extremity [Unknown]
  - Blood glucose decreased [Unknown]
  - Discomfort [Unknown]
  - Asthenia [Unknown]
  - Hypoacusis [Unknown]
  - Dizziness [Unknown]
  - Bone hypertrophy [Unknown]
  - Haematemesis [Unknown]

NARRATIVE: CASE EVENT DATE: 2016
